FAERS Safety Report 25761413 (Version 1)
Quarter: 2025Q3

REPORT INFORMATION
  Report Type: Report from Study
  Country: US (occurrence: US)
  Receive Date: 20250904
  Receipt Date: 20250904
  Transmission Date: 20251020
  Serious: Yes (Other)
  Sender: JAZZ
  Company Number: US-JAZZ PHARMACEUTICALS-2025-US-020377

PATIENT
  Sex: Female

DRUGS (1)
  1. XYWAV [Suspect]
     Active Substance: CALCIUM OXYBATE\MAGNESIUM OXYBATE\POTASSIUM OXYBATE\SODIUM OXYBATE
     Indication: Hypersomnia
     Dosage: 3, QD

REACTIONS (5)
  - Diabetes mellitus [Unknown]
  - Paraesthesia oral [Unknown]
  - Insomnia [Unknown]
  - Dizziness [Unknown]
  - Somnolence [Unknown]
